FAERS Safety Report 5861131-2 (Version None)
Quarter: 2008Q3

REPORT INFORMATION
  Report Type: 
  Country: None (occurrence: None)
  Receive Date: 20080827
  Receipt Date: 20080225
  Transmission Date: 20090109
  Serious: No
  Sender: FDA-Public Use
  Company Number: US-ABBOTT-08P-163-0440001-00

PATIENT
  Sex: Male

DRUGS (1)
  1. COATED PDS [Suspect]
     Indication: HIGH DENSITY LIPOPROTEIN DECREASED
     Route: 048
     Dates: start: 20071120, end: 20080225

REACTIONS (2)
  - ABDOMINAL PAIN [None]
  - NAUSEA [None]
